FAERS Safety Report 9246554 (Version 1)
Quarter: 2013Q2

REPORT INFORMATION
  Report Type: Report from Study
  Country: US (occurrence: US)
  Receive Date: 20130422
  Receipt Date: 20130422
  Transmission Date: 20140414
  Serious: No
  Sender: FDA-Public Use
  Company Number: US-ABBOTT-13P-163-1039966-00

PATIENT
  Age: 46 Year
  Sex: Male

DRUGS (1)
  1. LUPRON DEPOT-PED [Suspect]
     Indication: WRONG DRUG ADMINISTERED
     Dosage: KIT
     Dates: start: 20130122, end: 20130122

REACTIONS (1)
  - Wrong drug administered [Not Recovered/Not Resolved]
